FAERS Safety Report 13662710 (Version 1)
Quarter: 2017Q2

REPORT INFORMATION
  Report Type: Spontaneous
  Country: US (occurrence: US)
  Receive Date: 20170616
  Receipt Date: 20170616
  Transmission Date: 20170830
  Serious: Yes (Other)
  Sender: FDA-Public Use
  Company Number: None

PATIENT
  Age: 22 Year
  Sex: Male
  Weight: 76.5 kg

DRUGS (5)
  1. ZYPREXA [Concomitant]
     Active Substance: OLANZAPINE
  2. CLOZARIL [Concomitant]
     Active Substance: CLOZAPINE
  3. EFFEXOR [Concomitant]
     Active Substance: VENLAFAXINE HYDROCHLORIDE
  4. PROZASON [Concomitant]
  5. ABILIFY [Suspect]
     Active Substance: ARIPIPRAZOLE
     Indication: SCHIZOPHRENIA
     Dosage: ?          QUANTITY:1 INJECTION(S);OTHER FREQUENCY:ONLY HAD ONE;?
     Route: 030
     Dates: start: 20160712, end: 20160812

REACTIONS (8)
  - Insomnia [None]
  - Agitation [None]
  - Impulse-control disorder [None]
  - Speech disorder [None]
  - Delusion [None]
  - Irritability [None]
  - Aggression [None]
  - Personality change [None]

NARRATIVE: CASE EVENT DATE: 20160713
